FAERS Safety Report 5751232-1 (Version None)
Quarter: 2008Q2

REPORT INFORMATION
  Report Type: 
  Country: None (occurrence: None)
  Receive Date: 20080528
  Receipt Date: 20080505
  Transmission Date: 20081010
  Serious: No
  Sender: FDA-Public Use
  Company Number: US-BOEHRINGER INGELHEIM GMBH, GERMANY-2008-BP-07097BP

PATIENT
  Sex: Female

DRUGS (2)
  1. COMBIVENT [Suspect]
     Indication: BRONCHITIS
     Route: 055
     Dates: start: 20080502, end: 20080502
  2. COMBIVENT [Suspect]
     Indication: ASTHMA

REACTIONS (3)
  - COUGH [None]
  - DRUG INEFFECTIVE [None]
  - LUNG DISORDER [None]
